FAERS Safety Report 17415775 (Version 5)
Quarter: 2020Q2

REPORT INFORMATION
  Report Type: Report from Study
  Country: CO (occurrence: CO)
  Receive Date: 20200213
  Receipt Date: 20200407
  Transmission Date: 20200713
  Serious: Yes (Hospitalization)
  Sender: FDA-Public Use
  Company Number: NVSC2019CO068349

PATIENT
  Age: 35 Year
  Sex: Female
  Weight: 58.5 kg

DRUGS (4)
  1. RANITIDINE. [Concomitant]
     Active Substance: RANITIDINE
     Indication: PRODUCT USED FOR UNKNOWN INDICATION
     Route: 065
  2. SANDOSTATIN LAR DEPOT [Suspect]
     Active Substance: OCTREOTIDE ACETATE
     Indication: GASTROENTEROPANCREATIC NEUROENDOCRINE TUMOUR DISEASE
     Dosage: 30 MG, QMO (STARTED 2 YEARS AGO)
     Route: 030
  3. ACETAMINOPHEN. [Concomitant]
     Active Substance: ACETAMINOPHEN
     Indication: PRODUCT USED FOR UNKNOWN INDICATION
     Route: 065
  4. ALUMINIUM HYDROXIDE [Concomitant]
     Active Substance: ALUMINUM HYDROXIDE
     Indication: DYSPEPSIA
     Route: 065

REACTIONS (20)
  - Pain [Unknown]
  - Diabetes mellitus [Unknown]
  - Vomiting [Unknown]
  - Blood calcium increased [Recovering/Resolving]
  - Blood pH increased [Unknown]
  - Neuroendocrine tumour [Unknown]
  - Back pain [Recovered/Resolved]
  - Blood glucose increased [Unknown]
  - Blood electrolytes decreased [Recovered/Resolved]
  - Recurrent cancer [Unknown]
  - Abdominal pain [Unknown]
  - Malaise [Unknown]
  - Ketoacidosis [Not Recovered/Not Resolved]
  - Dyspnoea [Unknown]
  - Gastritis [Unknown]
  - General physical health deterioration [Unknown]
  - Blood pH decreased [Unknown]
  - Blood bicarbonate decreased [Unknown]
  - Fine motor skill dysfunction [Unknown]
  - Overdose [Unknown]

NARRATIVE: CASE EVENT DATE: 20200223
